FAERS Safety Report 9949881 (Version 1)
Quarter: 2014Q1

REPORT INFORMATION
  Report Type: Report from Study
  Country: US (occurrence: US)
  Receive Date: 20140304
  Receipt Date: 20140304
  Transmission Date: 20141002
  Serious: No
  Sender: FDA-Public Use
  Company Number: US-ABBVIE-13P-163-1069411-00

PATIENT
  Age: 59 Year
  Sex: Male
  Weight: 104.42 kg

DRUGS (7)
  1. HUMIRA [Suspect]
     Indication: PSORIATIC ARTHROPATHY
     Dates: end: 201212
  2. HUMIRA [Suspect]
  3. CELEBREX [Concomitant]
     Indication: PSORIATIC ARTHROPATHY
  4. SULFASALAZINE [Concomitant]
     Indication: PSORIATIC ARTHROPATHY
  5. SOMA [Concomitant]
     Indication: MUSCLE RELAXANT THERAPY
  6. ZETIA [Concomitant]
     Indication: BLOOD CHOLESTEROL INCREASED
  7. BYSTOLIC [Concomitant]
     Indication: HYPERTENSION

REACTIONS (7)
  - Malaise [Not Recovered/Not Resolved]
  - Bronchitis [Recovered/Resolved]
  - Cough [Recovered/Resolved]
  - Sputum discoloured [Recovered/Resolved]
  - Pyrexia [Recovered/Resolved]
  - Cough [Not Recovered/Not Resolved]
  - Sputum discoloured [Not Recovered/Not Resolved]
